FAERS Safety Report 17004185 (Version 1)
Quarter: 2019Q4

REPORT INFORMATION
  Report Type: Spontaneous
  Country: TR (occurrence: TR)
  Receive Date: 20191107
  Receipt Date: 20191107
  Transmission Date: 20200122
  Serious: Yes (Hospitalization, Other)
  Sender: FDA-Public Use
  Company Number: TR-GLAXOSMITHKLINE-TR2019GSK199474

PATIENT
  Age: 42 Year
  Sex: Female

DRUGS (1)
  1. LANSOPRAZOLE. [Suspect]
     Active Substance: LANSOPRAZOLE
     Indication: ABDOMINAL PAIN UPPER
     Dosage: 30 MG, UNK
     Route: 048

REACTIONS (10)
  - Skin plaque [Recovered/Resolved]
  - Dyspnoea [Recovered/Resolved]
  - Hypoperfusion [Recovered/Resolved]
  - Pruritus [Recovered/Resolved]
  - Palatal oedema [Recovered/Resolved]
  - Rash erythematous [Recovered/Resolved]
  - Anaphylactic reaction [Recovered/Resolved]
  - Oedema mucosal [Recovered/Resolved]
  - Lip oedema [Recovered/Resolved]
  - Breath sounds abnormal [Recovered/Resolved]
